FAERS Safety Report 4884677-2 (Version None)
Quarter: 2006Q1

REPORT INFORMATION
  Report Type: 
  Country: None (occurrence: None)
  Receive Date: 20060117
  Receipt Date: 20060109
  Transmission Date: 20060701
  Serious: Yes (Other)
  Sender: FDA-Public Use
  Company Number: 2005158727

PATIENT
  Age: 60 Year
  Sex: Female

DRUGS (6)
  1. NORVASC [Suspect]
     Indication: BLOOD PRESSURE
     Dosage: 10 MG (10 MG, QD),
     Dates: start: 20050829
  2. ZOLOFT [Concomitant]
  3. ZYRTEC [Concomitant]
  4. LIPITOR [Concomitant]
  5. LOTREL [Concomitant]
  6. ACCUPRIL [Concomitant]

REACTIONS (14)
  - ANXIETY [None]
  - BLOOD PRESSURE DECREASED [None]
  - BLOOD PRESSURE INCREASED [None]
  - BORDERLINE PERSONALITY DISORDER [None]
  - CARDIAC FLUTTER [None]
  - COUGH [None]
  - DIZZINESS [None]
  - FAMILY STRESS [None]
  - HAIR GROWTH ABNORMAL [None]
  - HEADACHE [None]
  - HEART RATE INCREASED [None]
  - PALPITATIONS [None]
  - PERSONALITY DISORDER [None]
  - THROAT TIGHTNESS [None]
